FAERS Safety Report 4647536-6 (Version None)
Quarter: 2005Q2

REPORT INFORMATION
  Report Type: 
  Country: None (occurrence: None)
  Receive Date: 20050426
  Receipt Date: 20050412
  Transmission Date: 20051028
  Serious: Yes (Other)
  Sender: FDA-Public Use
  Company Number: 2005-04-0028

PATIENT
  Age: 30 Year
  Sex: Male

DRUGS (2)
  1. CLARITIN REDITABS [Suspect]
     Indication: RHINITIS ALLERGIC
     Dosage: 10 MG ORAL
     Route: 048
     Dates: start: 20050321, end: 20050330
  2. ALLEGRA [Suspect]
     Indication: RHINITIS ALLERGIC
     Dosage: 60 MG HS ORAL
     Route: 048
     Dates: start: 20050301

REACTIONS (3)
  - EPILEPSY [None]
  - LOSS OF CONSCIOUSNESS [None]
  - THERAPY NON-RESPONDER [None]
